FAERS Safety Report 8135366-2 (Version None)
Quarter: 2012Q1

REPORT INFORMATION
  Report Type: 
  Country: None (occurrence: None)
  Receive Date: 20120214
  Receipt Date: 20120208
  Transmission Date: 20120608
  Serious: Yes (Life-Threatening, Hospitalization)
  Sender: FDA-Public Use
  Company Number: SE-AMGEN-US112029

PATIENT
  Age: 47 Year
  Sex: Male

DRUGS (10)
  1. ETANERCEPT [Suspect]
     Indication: PSORIASIS
  2. METHOTREXATE [Suspect]
     Indication: RHEUMATOID ARTHRITIS
     Dosage: UNK UNK, QWK
     Dates: start: 19990101, end: 19991216
  3. CARMELLOSE [Concomitant]
     Dosage: UNK
  4. EPOGEN [Concomitant]
     Dosage: UNK
  5. NANDROLONE [Concomitant]
     Dosage: UNK
  6. ETANERCEPT [Suspect]
     Indication: RHEUMATOID ARTHRITIS
     Dosage: UNK
     Dates: start: 19990701, end: 19991216
  7. IRON SORBITEX [Concomitant]
     Dosage: UNK
  8. OMEPRAZOLE [Concomitant]
     Dosage: UNK
  9. CALCIUM [Concomitant]
     Dosage: UNK
  10. DEXAMETHASONE [Concomitant]
     Dosage: UNK

REACTIONS (1)
  - ENCEPHALITIS [None]
